FAERS Safety Report 4675957-4 (Version None)
Quarter: 2005Q2

REPORT INFORMATION
  Report Type: 
  Country: None (occurrence: None)
  Receive Date: 20050527
  Receipt Date: 20050311
  Transmission Date: 20051028
  Serious: No
  Sender: FDA-Public Use
  Company Number: US-GLAXOSMITHKLINE-A0549426A

PATIENT
  Age: 35 Year
  Sex: Female

DRUGS (2)
  1. WELLBUTRIN XL [Suspect]
     Indication: ILL-DEFINED DISORDER
     Route: 048
     Dates: start: 20050101, end: 20050201
  2. VICODIN [Concomitant]

REACTIONS (1)
  - SWELLING FACE [None]
